FAERS Safety Report 16788764 (Version 1)
Quarter: 2019Q3

REPORT INFORMATION
  Report Type: Spontaneous
  Country: US (occurrence: US)
  Receive Date: 20190910
  Receipt Date: 20190910
  Transmission Date: 20191005
  Serious: No
  Sender: FDA-Public Use
  Company Number: US-HETERO-HET2019US01238

PATIENT

DRUGS (1)
  1. LOSARTAN. [Suspect]
     Active Substance: LOSARTAN
     Indication: PRODUCT USED FOR UNKNOWN INDICATION
     Dosage: 50 MG
     Route: 065

REACTIONS (8)
  - Headache [Unknown]
  - Pain [Unknown]
  - Heart rate irregular [Unknown]
  - Nausea [Unknown]
  - Paraesthesia [Unknown]
  - Dizziness [Unknown]
  - Recalled product administered [Unknown]
  - Feeling abnormal [Unknown]
